FAERS Safety Report 8816046 (Version 1)
Quarter: 2012Q4

REPORT INFORMATION
  Report Type: 
  Country: PL (occurrence: PL)
  Receive Date: 20120928
  Receipt Date: 20120928
  Transmission Date: 20130627
  Serious: Yes (Death, Other)
  Sender: FDA-Public Use
  Company Number: PL-CELGENEUS-129-50794-11080055

PATIENT
  Age: 52 Year
  Sex: Male

DRUGS (3)
  1. VIDAZA [Suspect]
     Indication: MYELODYSPLASTIC SYNDROME
     Dosage: 75 milligram/sq. meter
     Route: 058
     Dates: start: 201003
  2. VIDAZA [Suspect]
     Dosage: 75 milligram/sq. meter
     Route: 058
     Dates: start: 2011, end: 201103
  3. VIDAZA [Suspect]
     Dosage: 75 milligram/sq. meter
     Route: 058
     Dates: start: 201104, end: 201109

REACTIONS (6)
  - Septic shock [Fatal]
  - Urinary retention [Unknown]
  - Urinary tract infection [Unknown]
  - Nephrolithiasis [Recovered/Resolved]
  - Acute myeloid leukaemia [Unknown]
  - Serum ferritin increased [Unknown]
